FAERS Safety Report 21658325 (Version 1)
Quarter: 2022Q4

REPORT INFORMATION
  Report Type: Spontaneous
  Country: US (occurrence: None)
  Receive Date: 20221128
  Receipt Date: 20221128
  Transmission Date: 20230113
  Serious: Yes (Life-Threatening, Hospitalization)
  Sender: FDA-Public Use
  Company Number: None

PATIENT
  Age: 63 Year
  Sex: Male

DRUGS (1)
  1. LISINOPRIL [Suspect]
     Active Substance: LISINOPRIL

REACTIONS (10)
  - Laboratory test abnormal [None]
  - Nausea [None]
  - Vomiting [None]
  - Urinary retention [None]
  - Blood urea increased [None]
  - Acidosis [None]
  - Blood potassium increased [None]
  - Blood creatinine increased [None]
  - Hydronephrosis [None]
  - Benign prostatic hyperplasia [None]

NARRATIVE: CASE EVENT DATE: 20220713
